FAERS Safety Report 8953626 (Version 1)
Quarter: 2012Q4

REPORT INFORMATION
  Report Type: Report from Study
  Country: CA (occurrence: CA)
  Receive Date: 20121206
  Receipt Date: 20121206
  Transmission Date: 20130627
  Serious: Yes (Hospitalization)
  Sender: FDA-Public Use
  Company Number: CA-ROCHE-1162508

PATIENT
  Age: 61 Year
  Sex: Female

DRUGS (2)
  1. OMALIZUMAB [Suspect]
     Indication: ASTHMA
     Route: 058
     Dates: start: 20060330
  2. OMALIZUMAB [Suspect]
     Route: 058
     Dates: start: 20060301

REACTIONS (8)
  - Lung infection [Unknown]
  - Hypoxia [Unknown]
  - Ear infection [Recovering/Resolving]
  - Amnesia [Not Recovered/Not Resolved]
  - Cough [Unknown]
  - Urinary tract infection [Recovering/Resolving]
  - Loss of consciousness [Unknown]
  - Nasopharyngitis [Unknown]
